FAERS Safety Report 8796441 (Version 2)
Quarter: 2014Q2

REPORT INFORMATION
  Report Type: Spontaneous
  Country: JP (occurrence: JP)
  Receive Date: 20120919
  Receipt Date: 20131017
  Transmission Date: 20141212
  Serious: Yes (Other)
  Sender: FDA-Public Use
  Company Number: JP-PFIZER INC-2012225854

PATIENT
  Age: 73 Year
  Sex: Male
  Weight: 43.8 kg

DRUGS (3)
  1. DALACIN [Suspect]
     Indication: STAPHYLOCOCCAL INFECTION
     Route: 042
  2. VANCOMYCIN HCL [Suspect]
     Indication: STAPHYLOCOCCAL INFECTION
     Route: 042
  3. TIENAM [Suspect]
     Indication: STAPHYLOCOCCAL INFECTION
     Route: 042

REACTIONS (1)
  - Renal impairment [Unknown]
